FAERS Safety Report 20883151 (Version 2)
Quarter: 2022Q2

REPORT INFORMATION
  Report Type: Report from Study
  Country: DE (occurrence: DE)
  Receive Date: 20220527
  Receipt Date: 20220530
  Transmission Date: 20220721
  Serious: Yes (Other)
  Sender: FDA-Public Use
  Company Number: DE-ALCEDIS-DUPIL589

PATIENT
  Age: 57 Year
  Sex: Female
  Weight: 145 kg

DRUGS (1)
  1. DUPILUMAB [Suspect]
     Active Substance: DUPILUMAB
     Indication: Asthma
     Dosage: EVERY OTHER WEEK
     Route: 058
     Dates: start: 20200929

REACTIONS (5)
  - Adrenal insufficiency [Not Recovered/Not Resolved]
  - Asthma [Recovered/Resolved]
  - Urinary tract infection [Recovered/Resolved]
  - Urinary tract infection [Recovered/Resolved]
  - Urinary retention [Recovered/Resolved]

NARRATIVE: CASE EVENT DATE: 20220305
